FAERS Safety Report 24601634 (Version 1)
Quarter: 2024Q4

REPORT INFORMATION
  Report Type: Spontaneous
  Country: US (occurrence: US)
  Receive Date: 20241111
  Receipt Date: 20241111
  Transmission Date: 20250115
  Serious: No
  Sender: ELI LILLY AND COMPANY
  Company Number: US-ELI_LILLY_AND_COMPANY-US202410020264

PATIENT
  Age: 66 Year
  Sex: Male

DRUGS (3)
  1. MOUNJARO [Suspect]
     Active Substance: TIRZEPATIDE
     Indication: Diabetes mellitus
     Dosage: UNK UNK, UNKNOWN
     Route: 065
  2. JARDIANCE [Suspect]
     Active Substance: EMPAGLIFLOZIN
     Indication: Blood glucose abnormal
     Dosage: 25 MG, UNKNOWN
     Route: 065
  3. BENZYL BENZOATE [Concomitant]
     Active Substance: BENZYL BENZOATE
     Indication: Depression

REACTIONS (8)
  - Sleep apnoea syndrome [Unknown]
  - Weight decreased [Unknown]
  - Illness [Unknown]
  - Glycosylated haemoglobin decreased [Unknown]
  - Blood glucose decreased [Unknown]
  - Gastrooesophageal reflux disease [Recovered/Resolved]
  - Constipation [Unknown]
  - Nausea [Recovered/Resolved]

NARRATIVE: CASE EVENT DATE: 20241028
